FAERS Safety Report 12951998 (Version 1)
Quarter: 2016Q4

REPORT INFORMATION
  Report Type: Spontaneous
  Country: CN (occurrence: CN)
  Receive Date: 20161117
  Receipt Date: 20161117
  Transmission Date: 20170207
  Serious: Yes (Hospitalization)
  Sender: FDA-Public Use
  Company Number: CN-BAYER-2016-215289

PATIENT
  Age: 87 Year
  Sex: Male
  Weight: 84 kg

DRUGS (3)
  1. ASPIRIN. [Suspect]
     Active Substance: ASPIRIN
     Indication: CORONARY ARTERY DISEASE
     Dosage: 25 MG, QD
     Route: 048
     Dates: start: 20160820, end: 20160824
  2. CLOPIDOGREL [Concomitant]
     Active Substance: CLOPIDOGREL BISULFATE
     Indication: CORONARY ARTERY DISEASE
     Dosage: 75 MG, QD
     Route: 048
     Dates: start: 20151210, end: 20160824
  3. BAYASPIRIN [Suspect]
     Active Substance: ASPIRIN
     Indication: CORONARY ARTERY DISEASE
     Dosage: 100 MG, QD
     Route: 048
     Dates: start: 20151210, end: 20160819

REACTIONS (2)
  - Skin plaque [Not Recovered/Not Resolved]
  - Gastric ulcer [Not Recovered/Not Resolved]

NARRATIVE: CASE EVENT DATE: 20160824
